FAERS Safety Report 6362358-6 (Version None)
Quarter: 2009Q3

REPORT INFORMATION
  Report Type: 
  Country: None (occurrence: None)
  Receive Date: 20090918
  Receipt Date: 20090706
  Transmission Date: 20100115
  Serious: No
  Sender: FDA-Public Use
  Company Number: US-ABBOTT-08P-163-0491456-00

PATIENT
  Sex: Female

DRUGS (7)
  1. HUMIRA [Suspect]
     Indication: RHEUMATOID ARTHRITIS
     Route: 058
     Dates: start: 20071219, end: 20081101
  2. HUMIRA [Suspect]
     Dosage: 1 INJECTION
     Route: 058
     Dates: start: 20090301, end: 20090301
  3. HUMIRA [Suspect]
     Route: 058
  4. BIAXIN [Suspect]
     Indication: BRONCHITIS
     Route: 048
     Dates: start: 20081125, end: 20081204
  5. METHOTREXATE [Concomitant]
     Indication: RHEUMATOID ARTHRITIS
     Dosage: UNKNOWN
  6. ARAVA [Concomitant]
     Indication: RHEUMATOID ARTHRITIS
     Dosage: UNKNOWN
  7. PLAQUENIL [Concomitant]
     Indication: RHEUMATOID ARTHRITIS
     Dosage: UNKNOWN

REACTIONS (8)
  - BREAKTHROUGH PAIN [None]
  - BRONCHITIS CHRONIC [None]
  - CHILLS [None]
  - FEELING HOT [None]
  - INFLUENZA [None]
  - LYMPHADENOPATHY [None]
  - PYREXIA [None]
  - RESPIRATORY DISORDER [None]
